FAERS Safety Report 10251044 (Version 2)
Quarter: 2014Q2

REPORT INFORMATION
  Report Type: Spontaneous
  Country: US (occurrence: US)
  Receive Date: 20140620
  Receipt Date: 20140624
  Transmission Date: 20141212
  Serious: Yes (Death, Hospitalization)
  Sender: FDA-Public Use
  Company Number: US-B.I. PHARMACEUTICALS,INC./RIDGEFIELD-2014-BI-27906BP

PATIENT
  Sex: Female
  Weight: 71.2 kg

DRUGS (13)
  1. PRADAXA [Suspect]
     Indication: ATRIAL FIBRILLATION
     Dosage: 300 MG
     Route: 048
     Dates: start: 20131113, end: 20140212
  2. ASPIRIN [Concomitant]
     Indication: ATRIAL FIBRILLATION
     Dosage: 81 MG
     Route: 048
  3. PLAVIX [Concomitant]
     Indication: ATRIAL FIBRILLATION
     Dosage: 75 MG
     Route: 048
  4. PREDNISIONE [Concomitant]
     Indication: STEM CELL TRANSPLANT
     Dosage: 10 MG
     Route: 048
  5. PREDNISIONE [Concomitant]
     Indication: GRAFT VERSUS HOST DISEASE
  6. SROLIMUS [Concomitant]
     Indication: STEM CELL TRANSPLANT
     Dosage: 1 MG
     Route: 048
  7. LOSARTAN [Concomitant]
     Indication: HYPERTENSION
     Dosage: 50 MG
     Route: 048
  8. METOPROLOL [Concomitant]
     Indication: HYPERTENSION
     Dosage: 400 MG
     Route: 048
  9. AMIODARONE [Concomitant]
     Indication: ATRIAL FIBRILLATION
     Dosage: 400 MG
     Route: 048
  10. ACYCLOVIR [Concomitant]
     Indication: STEM CELL TRANSPLANT
     Dosage: 1600 MG
     Route: 048
  11. SYTHINROID [Concomitant]
     Indication: HYPOTHYROIDISM
     Dosage: 150 MCG
     Route: 048
  12. METFORMIN [Concomitant]
     Indication: DIABETES MELLITUS
     Dosage: 1000 MG
     Route: 048
  13. ROSUVASTATIN [Concomitant]
     Indication: HYPERLIPIDAEMIA
     Dosage: 40 MG
     Route: 048

REACTIONS (3)
  - Hypovolaemic shock [Fatal]
  - Procedural haemorrhage [Unknown]
  - Coagulopathy [Unknown]
